FAERS Safety Report 4599747-6 (Version None)
Quarter: 2005Q1

REPORT INFORMATION
  Report Type: 
  Country: None (occurrence: None)
  Receive Date: 20050304
  Receipt Date: 20050304
  Transmission Date: 20050727
  Serious: Yes (Death)
  Sender: FDA-Public Use
  Company Number: None

PATIENT
  Sex: Female
  Weight: 56.7 kg

DRUGS (6)
  1. TOPOTECAN [Suspect]
     Indication: SMALL CELL LUNG CANCER STAGE UNSPECIFIED
     Dosage: 3MG   DAY  ORAL
     Route: 048
     Dates: start: 20050122, end: 20050128
  2. CARBOPLATIN [Suspect]
     Indication: SMALL CELL LUNG CANCER STAGE UNSPECIFIED
     Dosage: AUC 5     Q 21 DAYS    INTRAVENOU
     Route: 042
     Dates: start: 20050127, end: 20050127
  3. ROXANOL [Concomitant]
  4. ATIVAN [Concomitant]
  5. ATROPINE [Concomitant]
  6. COMPAZINE [Concomitant]

REACTIONS (1)
  - GENERAL PHYSICAL HEALTH DETERIORATION [None]
